FAERS Safety Report 13423932 (Version 1)
Quarter: 2017Q2

REPORT INFORMATION
  Report Type: Spontaneous
  Country: BE (occurrence: BE)
  Receive Date: 20170410
  Receipt Date: 20170410
  Transmission Date: 20170830
  Serious: Yes (Death)
  Sender: FDA-Public Use
  Company Number: BE-PFIZER INC-2017147307

PATIENT
  Age: 51 Year
  Sex: Female

DRUGS (15)
  1. VORICONAZOLE. [Suspect]
     Active Substance: VORICONAZOLE
     Dosage: 4 MG/KG, 2X/DAY
  2. MEROPENEM. [Concomitant]
     Active Substance: MEROPENEM
     Indication: INFLUENZA
     Dosage: 1 G, 3X/DAY
     Route: 042
  3. OSELTAMIVIR [Concomitant]
     Active Substance: OSELTAMIVIR
     Indication: INFLUENZA
     Dosage: 75 MG, 2X/DAY
     Route: 048
  4. METHYLPREDNISOLONE. [Concomitant]
     Active Substance: METHYLPREDNISOLONE
     Indication: POLYMYOSITIS
     Dosage: 1 G, DAILY
  5. ZANAMIVIR [Concomitant]
     Active Substance: ZANAMIVIR
     Indication: INFLUENZA
     Dosage: 10 MG, 2X/DAY
  6. VORICONAZOLE. [Suspect]
     Active Substance: VORICONAZOLE
     Indication: ASPERGILLUS INFECTION
     Dosage: 6 MG/KG, A LOADING DOSE
  7. METHYLPREDNISOLONE. [Concomitant]
     Active Substance: METHYLPREDNISOLONE
     Indication: HAEMODYNAMIC INSTABILITY
     Dosage: 40 MG, DAILY
  8. CASPOFUNGIN [Suspect]
     Active Substance: CASPOFUNGIN
     Dosage: 50 MG, 1X/DAY
  9. IMMUNOGLOBULIN /00025201/ [Suspect]
     Active Substance: HUMAN IMMUNOGLOBULIN G
     Indication: BRONCHOPULMONARY ASPERGILLOSIS
     Dosage: UNK
     Route: 042
  10. AMOXICILLIN. [Concomitant]
     Active Substance: AMOXICILLIN
     Indication: RHABDOMYOLYSIS
  11. ACETYLSALICYLIC ACID [Concomitant]
     Active Substance: ASPIRIN
     Indication: HAEMODYNAMIC INSTABILITY
     Dosage: 1 G, 4X/DAY
     Route: 042
  12. CASPOFUNGIN [Suspect]
     Active Substance: CASPOFUNGIN
     Indication: BRONCHOPULMONARY ASPERGILLOSIS
     Dosage: 70 MG, LOADING DOSE
  13. AMOXICILLIN. [Concomitant]
     Active Substance: AMOXICILLIN
     Indication: MYOCARDITIS
     Dosage: 1 G, 4X/DAY
     Route: 042
  14. OSELTAMIVIR [Concomitant]
     Active Substance: OSELTAMIVIR
     Dosage: 40 MG, 2X/DAY (COMPASSIONATE USE FOR A TOTAL OF 14 DAYS)
     Route: 042
  15. OSELTAMIVIR [Concomitant]
     Active Substance: OSELTAMIVIR
     Dosage: 75 MG, ALTERNATE DAY (EVERY OTHER DAY)

REACTIONS (1)
  - Drug ineffective [Fatal]
